FAERS Safety Report 6173941-5 (Version None)
Quarter: 2009Q2

REPORT INFORMATION
  Report Type: 
  Country: None (occurrence: None)
  Receive Date: 20090430
  Receipt Date: 20090418
  Transmission Date: 20091009
  Serious: Yes (Other)
  Sender: FDA-Public Use
  Company Number: JP-PFIZER INC-2009187299

PATIENT

DRUGS (1)
  1. CHAMPIX [Suspect]
     Dosage: 2 MG, 1X/DAY
     Route: 048
     Dates: start: 20090113

REACTIONS (2)
  - FEELING COLD [None]
  - SOMNOLENCE [None]
